FAERS Safety Report 12158217 (Version 1)
Quarter: 2016Q1

REPORT INFORMATION
  Report Type: Spontaneous
  Country: US (occurrence: US)
  Receive Date: 20160308
  Receipt Date: 20160308
  Transmission Date: 20160526
  Serious: No
  Sender: FDA-Public Use
  Company Number: US-SUN PHARMACEUTICAL INDUSTRIES LTD-2015US-98724

PATIENT
  Age: 17 Year
  Sex: Female

DRUGS (2)
  1. ADVIL [Concomitant]
     Active Substance: IBUPROFEN
     Indication: PRODUCT USED FOR UNKNOWN INDICATION
     Dosage: UNK
     Route: 065
  2. SUMATRIPTAN. [Suspect]
     Active Substance: SUMATRIPTAN
     Indication: MIGRAINE
     Dosage: 1 DF, SINGLE
     Route: 065
     Dates: start: 20150511

REACTIONS (4)
  - Ligament sprain [Unknown]
  - Muscle tightness [Unknown]
  - Throat tightness [Unknown]
  - Pain [Unknown]

NARRATIVE: CASE EVENT DATE: 20150511
